FAERS Safety Report 6479961-5 (Version None)
Quarter: 2009Q4

REPORT INFORMATION
  Report Type: 
  Country: None (occurrence: None)
  Receive Date: 20091208
  Receipt Date: 20091119
  Transmission Date: 20100525
  Serious: Yes (Death, Life-Threatening)
  Sender: FDA-Public Use
  Company Number: JP-SANOFI-AVENTIS-2009SA003965

PATIENT
  Sex: Female
  Weight: 40 kg

DRUGS (25)
  1. PLAVIX [Suspect]
     Indication: ANGINA UNSTABLE
     Route: 048
     Dates: start: 20090819, end: 20090819
  2. PLAVIX [Suspect]
     Route: 048
     Dates: start: 20090820, end: 20090909
  3. HEPARIN [Suspect]
     Indication: ANGINA UNSTABLE
     Dosage: 400 UNITS/HOUR INTRAVENOUSLY DOSE:400 UNIT(S)
     Dates: start: 20090819, end: 20090820
  4. ASPIRIN [Concomitant]
     Indication: ANGINA UNSTABLE
     Route: 048
     Dates: start: 20090819, end: 20090909
  5. ATROPINE SULFATE [Concomitant]
     Dates: start: 20090819, end: 20090819
  6. NOREPINEPHRINE BITARTRATE [Concomitant]
     Dates: start: 20090819, end: 20090822
  7. NICORANDIL [Concomitant]
     Indication: ANGINA PECTORIS
     Dates: start: 20090819, end: 20090823
  8. CEFAZOLIN SODIUM [Concomitant]
     Dates: start: 20090819, end: 20090909
  9. THYRADIN-S [Concomitant]
     Route: 048
     Dates: end: 20090909
  10. LASIX [Concomitant]
     Route: 048
     Dates: start: 20090823, end: 20090909
  11. ALDACTONE [Concomitant]
     Route: 048
     Dates: start: 20090823, end: 20090909
  12. LANSOPRAZOLE [Concomitant]
     Route: 048
     Dates: start: 20090820, end: 20090909
  13. LEVOFLOXACIN [Concomitant]
     Route: 048
     Dates: start: 20090825, end: 20090902
  14. CRAVIT [Concomitant]
     Route: 048
     Dates: start: 20090821, end: 20090908
  15. ISOSORBIDE DINITRATE [Concomitant]
     Indication: ANGINA UNSTABLE
     Dates: start: 20090823, end: 20090909
  16. ASPARTATE POTASSIUM [Concomitant]
     Route: 048
     Dates: start: 20090830, end: 20090908
  17. OMEPRAL [Concomitant]
     Dates: start: 20090819, end: 20090819
  18. SILECE [Concomitant]
     Indication: INSOMNIA
     Dates: start: 20090819, end: 20090819
  19. CLEITON [Concomitant]
     Dates: start: 20090820, end: 20090909
  20. PROTAMINE SULFATE [Concomitant]
     Dates: start: 20090820, end: 20090820
  21. ALL OTHER THERAPEUTIC PRODUCTS [Concomitant]
     Dosage: DOSE:1500 UNIT(S)
     Dates: start: 20090902, end: 20090907
  22. NAFAMOSTAT MESILATE [Concomitant]
     Dates: start: 20090902, end: 20090909
  23. BISOLVON [Concomitant]
     Dates: start: 20090903, end: 20090909
  24. FUNGUARD [Concomitant]
     Dates: start: 20090904, end: 20090909
  25. ALBUMIN (HUMAN) [Concomitant]
     Dates: start: 20090906, end: 20090908

REACTIONS (3)
  - DISSEMINATED INTRAVASCULAR COAGULATION [None]
  - HAEMORRHAGE [None]
  - RETROPERITONEAL HAEMORRHAGE [None]
